FAERS Safety Report 17677933 (Version 26)
Quarter: 2022Q3

REPORT INFORMATION
  Report Type: Report from Study
  Country: JP (occurrence: JP)
  Receive Date: 20200417
  Receipt Date: 20220905
  Transmission Date: 20221026
  Serious: Yes (Hospitalization, Other)
  Sender: FDA-Public Use
  Company Number: JP-ONO-2020JP009392

PATIENT
  Age: 57 Year
  Sex: Female
  Weight: 51.5 kg

DRUGS (61)
  1. ETELCALCETIDE [Suspect]
     Active Substance: ETELCALCETIDE
     Indication: Hyperparathyroidism secondary
     Dosage: 5 MILLIGRAM, Q56H
     Route: 010
     Dates: start: 20200310, end: 20200916
  2. ETELCALCETIDE [Suspect]
     Active Substance: ETELCALCETIDE
     Dosage: 5 MILLIGRAM, Q56H
     Route: 010
     Dates: start: 20201107, end: 20210220
  3. ETELCALCETIDE [Suspect]
     Active Substance: ETELCALCETIDE
     Dosage: 5 MILLIGRAM, Q56H
     Route: 010
     Dates: start: 20210302, end: 20210417
  4. ETELCALCETIDE [Suspect]
     Active Substance: ETELCALCETIDE
     Dosage: 5 MILLIGRAM, QWK
     Route: 010
     Dates: start: 20211014, end: 20211109
  5. ETELCALCETIDE [Suspect]
     Active Substance: ETELCALCETIDE
     Dosage: 5 MILLIGRAM, Q84H
     Route: 010
     Dates: start: 20211118
  6. MAXACALCITOL [Suspect]
     Active Substance: MAXACALCITOL
     Indication: Product used for unknown indication
     Dosage: 5 MICROGRAM, Q56H
     Route: 065
     Dates: end: 20190824
  7. MAXACALCITOL [Suspect]
     Active Substance: MAXACALCITOL
     Dosage: 10 MICROGRAM, Q84H
     Route: 065
     Dates: start: 20190827, end: 20200201
  8. MAXACALCITOL [Suspect]
     Active Substance: MAXACALCITOL
     Dosage: 5 MICROGRAM, Q84H
     Route: 065
     Dates: start: 20200204, end: 20200222
  9. MAXACALCITOL [Suspect]
     Active Substance: MAXACALCITOL
     Dosage: 5 MICROGRAM, QWK
     Route: 065
     Dates: start: 20200225, end: 20200421
  10. MAXACALCITOL [Suspect]
     Active Substance: MAXACALCITOL
     Dosage: 5 MICROGRAM, QWK
     Route: 042
     Dates: start: 20200623, end: 20200630
  11. MAXACALCITOL [Suspect]
     Active Substance: MAXACALCITOL
     Dosage: 5 MICROGRAM, Q56H
     Route: 042
     Dates: start: 20201020, end: 20201105
  12. MAXACALCITOL [Suspect]
     Active Substance: MAXACALCITOL
     Dosage: 5 MICROGRAM, Q84H
     Route: 042
     Dates: start: 20210216, end: 20210220
  13. MAXACALCITOL [Suspect]
     Active Substance: MAXACALCITOL
     Dosage: 5 MICROGRAM, QWK
     Route: 042
     Dates: start: 20210209, end: 20210220
  14. MAXACALCITOL [Suspect]
     Active Substance: MAXACALCITOL
     Dosage: 5 MICROGRAM, Q84H
     Route: 042
     Dates: start: 20210302, end: 20210417
  15. MAXACALCITOL [Suspect]
     Active Substance: MAXACALCITOL
     Dosage: 10 MICROGRAM, Q84H
     Route: 042
     Dates: start: 20210420, end: 20210612
  16. MAXACALCITOL [Suspect]
     Active Substance: MAXACALCITOL
     Dosage: 10 MICROGRAM, Q56H
     Route: 042
     Dates: start: 20210615, end: 20210717
  17. MAXACALCITOL [Suspect]
     Active Substance: MAXACALCITOL
     Dosage: 10 MICROGRAM, Q84H
     Route: 042
     Dates: start: 20210720, end: 20210904
  18. MAXACALCITOL [Suspect]
     Active Substance: MAXACALCITOL
     Dosage: 10 MICROGRAM, Q56H
     Route: 042
     Dates: start: 20210907, end: 20211009
  19. MAXACALCITOL [Suspect]
     Active Substance: MAXACALCITOL
     Dosage: 10 MICROGRAM, Q84H
     Route: 042
     Dates: start: 20211012
  20. MAXACALCITOL [Suspect]
     Active Substance: MAXACALCITOL
     Dosage: 5 MICROGRAM, QWK
     Route: 042
     Dates: start: 20211012
  21. OXAROL [Suspect]
     Active Substance: MAXACALCITOL
     Indication: Product used for unknown indication
     Dosage: 2.5 MICROGRAM, QWK
     Route: 065
     Dates: start: 20200704, end: 20200917
  22. OXAROL [Suspect]
     Active Substance: MAXACALCITOL
     Dosage: 2.5 MICROGRAM, Q56H
     Route: 065
     Dates: start: 20210223, end: 20210227
  23. DARBEPOETIN ALFA [Concomitant]
     Active Substance: DARBEPOETIN ALFA
     Indication: Nephrogenic anaemia
     Dosage: 20 MICROGRAM, QWK
     Route: 042
     Dates: start: 20190827, end: 20190827
  24. DARBEPOETIN ALFA [Concomitant]
     Active Substance: DARBEPOETIN ALFA
     Dosage: 5 MICROGRAM, QWK
     Route: 042
     Dates: start: 20190903, end: 20191001
  25. DARBEPOETIN ALFA [Concomitant]
     Active Substance: DARBEPOETIN ALFA
     Dosage: 30 MICROGRAM, QWK
     Route: 042
     Dates: start: 20191008, end: 20200303
  26. DARBEPOETIN ALFA [Concomitant]
     Active Substance: DARBEPOETIN ALFA
     Dosage: 15 MICROGRAM, QWK
     Route: 042
     Dates: start: 20200310, end: 20200630
  27. DARBEPOETIN ALFA [Concomitant]
     Active Substance: DARBEPOETIN ALFA
     Dosage: 20 MICROGRAM, QWK
     Route: 042
     Dates: start: 20200707, end: 20200728
  28. DARBEPOETIN ALFA [Concomitant]
     Active Substance: DARBEPOETIN ALFA
     Dosage: 60 MICROGRAM, QWK
     Route: 042
     Dates: start: 20200804, end: 20200915
  29. DARBEPOETIN ALFA [Concomitant]
     Active Substance: DARBEPOETIN ALFA
     Dosage: 40 MICROGRAM, QWK
     Route: 042
     Dates: start: 20200919, end: 20210216
  30. DARBEPOETIN ALFA [Concomitant]
     Active Substance: DARBEPOETIN ALFA
     Dosage: 240 MICROGRAM, QWK
     Route: 042
     Dates: start: 20210223, end: 20210227
  31. DARBEPOETIN ALFA [Concomitant]
     Active Substance: DARBEPOETIN ALFA
     Dosage: 40 MICROGRAM, Q56H
     Route: 042
     Dates: start: 20210302
  32. FERRIC CITRATE ANHYDROUS [Concomitant]
     Active Substance: FERRIC CITRATE ANHYDROUS
     Dosage: 2250 MILLIGRAM, QD
     Route: 048
     Dates: end: 20191030
  33. FERRIC CITRATE ANHYDROUS [Concomitant]
     Active Substance: FERRIC CITRATE ANHYDROUS
     Dosage: 1500 MILLIGRAM, QD
     Route: 048
     Dates: start: 20191031, end: 20191127
  34. FERRIC CITRATE ANHYDROUS [Concomitant]
     Active Substance: FERRIC CITRATE ANHYDROUS
     Dosage: 750 MILLIGRAM, QD
     Route: 048
     Dates: start: 20191128, end: 20191202
  35. FERRIC CITRATE ANHYDROUS [Concomitant]
     Active Substance: FERRIC CITRATE ANHYDROUS
     Dosage: 1500 MILLIGRAM, QD
     Route: 048
     Dates: start: 20191203, end: 20191219
  36. FERRIC CITRATE ANHYDROUS [Concomitant]
     Active Substance: FERRIC CITRATE ANHYDROUS
     Dosage: 750 MILLIGRAM, QD
     Route: 048
     Dates: start: 20191220, end: 20200225
  37. FERRIC CITRATE ANHYDROUS [Concomitant]
     Active Substance: FERRIC CITRATE ANHYDROUS
     Dosage: 250 MILLIGRAM, QD
     Route: 048
     Dates: start: 20200303, end: 20200430
  38. FERRIC CITRATE ANHYDROUS [Concomitant]
     Active Substance: FERRIC CITRATE ANHYDROUS
     Dosage: 250 MILLIGRAM, QD
     Route: 048
     Dates: start: 20220222, end: 20220307
  39. FERRIC HYDROXIDE [Concomitant]
     Active Substance: FERRIC HYDROXIDE
     Indication: Hyperphosphataemia
     Dosage: 500 MILLIGRAM, Q8H
     Route: 048
     Dates: start: 20200311, end: 20200728
  40. FERRIC HYDROXIDE [Concomitant]
     Active Substance: FERRIC HYDROXIDE
     Dosage: 1500 MILLIGRAM, QD
     Route: 048
     Dates: start: 20201001
  41. FERRIC HYDROXIDE [Concomitant]
     Active Substance: FERRIC HYDROXIDE
     Dosage: 500 MILLIGRAM, QD
     Route: 048
     Dates: start: 20210302
  42. NIPOLAZIN [Concomitant]
     Indication: Pruritus
     Dosage: 3 MILLIGRAM, QD
     Route: 048
     Dates: start: 20200303
  43. LINAGLIPTIN [Concomitant]
     Active Substance: LINAGLIPTIN
     Indication: Diabetes mellitus
     Dosage: 5 MILLIGRAM, QD
     Route: 048
     Dates: start: 20200228
  44. REPAGLINIDE [Concomitant]
     Active Substance: REPAGLINIDE
     Indication: Diabetes mellitus
     Dosage: 0.25 MILLIGRAM, Q12H
     Route: 048
     Dates: start: 20200311
  45. REPAGLINIDE [Concomitant]
     Active Substance: REPAGLINIDE
     Dosage: 0.25 MG, Q12H
     Route: 048
     Dates: start: 20200311
  46. NIFEDIPINE [Concomitant]
     Active Substance: NIFEDIPINE
     Indication: Hypertension
     Dosage: 20 MILLIGRAM, Q12H
     Route: 048
     Dates: start: 20200228, end: 20210222
  47. NIFEDIPINE [Concomitant]
     Active Substance: NIFEDIPINE
     Dosage: 40 MILLIGRAM, Q12H
     Route: 048
     Dates: start: 20210302
  48. LEVOCARNITINE HYDROCHLORIDE [Concomitant]
     Active Substance: LEVOCARNITINE HYDROCHLORIDE
     Indication: Carnitine deficiency
     Dosage: 1000 MILLIGRAM, QWK
     Route: 042
     Dates: end: 20210222
  49. LEVOCARNITINE HYDROCHLORIDE [Concomitant]
     Active Substance: LEVOCARNITINE HYDROCHLORIDE
     Dosage: 1000 MILLIGRAM, QWK
     Route: 042
     Dates: start: 20210302
  50. ISOSORBIDE DINITRATE [Concomitant]
     Active Substance: ISOSORBIDE DINITRATE
     Indication: Angina pectoris
     Dosage: 40 MILLIGRAM, QD
     Route: 062
     Dates: start: 20200225
  51. CALTAN [Concomitant]
     Active Substance: CALCIUM CARBONATE
     Indication: Hyperphosphataemia
     Dosage: 30000 MILLIGRAM, QD
     Route: 048
     Dates: end: 20191030
  52. CALTAN [Concomitant]
     Active Substance: CALCIUM CARBONATE
     Dosage: 1500 MILLIGRAM, QD
     Route: 048
     Dates: start: 20191031, end: 20200225
  53. CALTAN [Concomitant]
     Active Substance: CALCIUM CARBONATE
     Dosage: 1000 MILLIGRAM, QD
     Route: 048
     Dates: start: 20200430, end: 20200527
  54. CALTAN [Concomitant]
     Active Substance: CALCIUM CARBONATE
     Dosage: 1500 MILLIGRAM, QD
     Route: 048
     Dates: start: 20200528, end: 20200805
  55. IRON SUCROSE [Concomitant]
     Active Substance: IRON SUCROSE
     Dosage: 40 MILLIGRAM, QWK
     Route: 042
     Dates: end: 20190718
  56. IRON SUCROSE [Concomitant]
     Active Substance: IRON SUCROSE
     Dosage: 120 MILLIGRAM, QWK
     Route: 042
     Dates: start: 20201222, end: 20210123
  57. IRON SUCROSE [Concomitant]
     Active Substance: IRON SUCROSE
     Dosage: 160 MILLIGRAM, QWK
     Route: 042
     Dates: start: 20210223, end: 20210227
  58. IRON SUCROSE [Concomitant]
     Active Substance: IRON SUCROSE
     Dosage: 40 MILLIGRAM, QOD
     Route: 042
     Dates: start: 20220215, end: 20220312
  59. FOSRENOL [Concomitant]
     Active Substance: LANTHANUM CARBONATE
     Dosage: 1500 MILLIGRAM, QD
     Route: 048
     Dates: start: 20200729, end: 20201001
  60. CALCIUM POLYSTYRENE SULFONATE [Concomitant]
     Active Substance: CALCIUM POLYSTYRENE SULFONATE
     Indication: Hyperkalaemia
     Dosage: 5 MILLIGRAM, QD
     Route: 048
     Dates: start: 20210527
  61. DIGOXIN [Concomitant]
     Active Substance: DIGOXIN
     Indication: Cardiac dysfunction
     Dosage: 0.125 MILLIGRAM, Q84H
     Route: 048
     Dates: start: 20201029

REACTIONS (21)
  - Arteriosclerosis coronary artery [Recovered/Resolved]
  - Coronary artery stenosis [Recovered/Resolved]
  - Angina unstable [Recovered/Resolved]
  - Clavicle fracture [Recovering/Resolving]
  - Road traffic accident [Unknown]
  - Shunt stenosis [Recovered/Resolved]
  - Post procedural haemorrhage [Recovered/Resolved]
  - Pleural effusion [Recovered/Resolved]
  - Angina pectoris [Recovering/Resolving]
  - Arrhythmia [Recovered/Resolved]
  - Hypocalcaemia [Recovered/Resolved]
  - Shunt stenosis [Recovering/Resolving]
  - Shunt stenosis [Recovered/Resolved]
  - Blood calcium increased [Recovered/Resolved]
  - Blood calcium increased [Recovered/Resolved]
  - Pleural effusion [Recovered/Resolved]
  - Shunt stenosis [Recovered/Resolved]
  - Iron deficiency anaemia [Recovered/Resolved]
  - Thermal burn [Recovering/Resolving]
  - Vomiting [Recovered/Resolved]
  - Shunt stenosis [Recovered/Resolved]

NARRATIVE: CASE EVENT DATE: 20200310
